FAERS Safety Report 9302750 (Version 2)
Quarter: 2013Q2

REPORT INFORMATION
  Report Type: Spontaneous
  Country: GB (occurrence: GB)
  Receive Date: 20130522
  Receipt Date: 20130606
  Transmission Date: 20140414
  Serious: Yes (Other)
  Sender: FDA-Public Use
  Company Number: PHFR2013GB002928

PATIENT
  Age: 83 Year
  Sex: Female

DRUGS (6)
  1. STARLIX [Suspect]
     Indication: TYPE 2 DIABETES MELLITUS
     Dosage: 120 MG, TID
     Route: 048
  2. LEVOTHYROXIN [Concomitant]
     Dosage: 75 UG, UNK
     Route: 048
  3. DOCUSATE [Concomitant]
     Dosage: 200 MG, UNK
     Route: 048
  4. METOCLOPRAMIDE [Concomitant]
     Dosage: 10 MG, UNK
     Route: 048
  5. CLOPIDOGREL [Concomitant]
     Dosage: 75 MG, UNK
     Route: 048
  6. BUTRANS [Concomitant]
     Dosage: UNK UKN, UNK
     Route: 062

REACTIONS (5)
  - Myocardial ischaemia [Not Recovered/Not Resolved]
  - Neoplasm malignant [Not Recovered/Not Resolved]
  - Osteoporosis [Not Recovered/Not Resolved]
  - Hypothyroidism [Not Recovered/Not Resolved]
  - Dysphagia [Recovered/Resolved]
